FAERS Safety Report 8957282 (Version 1)
Quarter: 2012Q4

REPORT INFORMATION
  Report Type: 
  Country: US (occurrence: US)
  Receive Date: 20121210
  Receipt Date: 20121210
  Transmission Date: 20130627
  Serious: No
  Sender: FDA-Public Use
  Company Number: US-ASTELLAS-2012US010865

PATIENT
  Sex: Male

DRUGS (11)
  1. XTANDI [Suspect]
     Indication: PROSTATE CANCER
     Dosage: 160 mg, UID/QD
     Route: 048
     Dates: start: 201210
  2. ASPIRIN [Concomitant]
     Indication: PRODUCT USED FOR UNKNOWN INDICATION
     Dosage: 325 mg, UID/QD
     Route: 048
  3. VITAMIN B COMPLEX [Concomitant]
     Indication: PRODUCT USED FOR UNKNOWN INDICATION
     Dosage: 1 DF, UID/QD
     Route: 048
  4. VITAMIN D3 [Concomitant]
     Indication: PRODUCT USED FOR UNKNOWN INDICATION
     Dosage: 2000 U, UID/QD
     Route: 048
  5. LOVASTATIN [Concomitant]
     Indication: PRODUCT USED FOR UNKNOWN INDICATION
     Dosage: 10 mg, UID/QD
     Route: 048
  6. MAGNESIUM [Concomitant]
     Indication: PRODUCT USED FOR UNKNOWN INDICATION
     Dosage: 250 mg, UID/QD
     Route: 048
  7. TOPROL [Concomitant]
     Indication: PRODUCT USED FOR UNKNOWN INDICATION
     Dosage: 1 DF, UID/QD
     Route: 048
  8. AMBIEN [Concomitant]
     Indication: INSOMNIA
     Dosage: 5-10 mg QHS, prn
  9. BLOOD PRESSURE MEDICATION [Concomitant]
     Indication: BLOOD PRESSURE
     Dosage: UNK
     Route: 065
  10. CHOLESTEROL MEDICATION [Concomitant]
     Indication: BLOOD CHOLESTEROL
     Dosage: UNK
     Route: 065
  11. MULTIVITAMINS, PLAIN [Concomitant]
     Indication: PRODUCT USED FOR UNKNOWN INDICATION
     Dosage: UNK
     Route: 065

REACTIONS (2)
  - Abdominal pain upper [Recovered/Resolved]
  - Alopecia [Unknown]
